FAERS Safety Report 25984886 (Version 1)
Quarter: 2025Q4

REPORT INFORMATION
  Report Type: Spontaneous
  Country: US (occurrence: US)
  Receive Date: 20251031
  Receipt Date: 20251031
  Transmission Date: 20260118
  Serious: Yes (Other)
  Sender: TAKEDA
  Company Number: US-TAKEDA-2025TUS094299

PATIENT
  Age: 16 Year
  Sex: Male

DRUGS (7)
  1. ANTIHEMOPHILIC FACTOR, HUMAN RECOMBINANT [Suspect]
     Active Substance: ANTIHEMOPHILIC FACTOR, HUMAN RECOMBINANT
     Indication: Factor VIII deficiency
     Dosage: 45 INTERNATIONAL UNIT, Q3WEEKS
  2. ANTIHEMOPHILIC FACTOR, HUMAN RECOMBINANT [Suspect]
     Active Substance: ANTIHEMOPHILIC FACTOR, HUMAN RECOMBINANT
     Dosage: 30 INTERNATIONAL UNIT, QD
  3. ANTIHEMOPHILIC FACTOR, HUMAN RECOMBINANT [Suspect]
     Active Substance: ANTIHEMOPHILIC FACTOR, HUMAN RECOMBINANT
     Dosage: 60 INTERNATIONAL UNIT, QD
  4. ALPHANATE [Concomitant]
     Active Substance: HUMAN COAGULATION FACTOR VIII/VON WILLEBRAND FACTOR COMPLEX
     Indication: Haemorrhage prophylaxis
     Dosage: 45 INTERNATIONAL UNIT/KILOGRAM, QOD
  5. ALPHANATE [Concomitant]
     Active Substance: HUMAN COAGULATION FACTOR VIII/VON WILLEBRAND FACTOR COMPLEX
     Dosage: UNK UNK, QD
  6. EMICIZUMAB [Concomitant]
     Active Substance: EMICIZUMAB
     Indication: Haemorrhage prophylaxis
     Dosage: 3 MILLIGRAM/KILOGRAM, 1/WEEK
     Dates: start: 202008
  7. EMICIZUMAB [Concomitant]
     Active Substance: EMICIZUMAB
     Dosage: 1.5 MILLIGRAM/KILOGRAM, 1/WEEK

REACTIONS (1)
  - Haemorrhage [Not Recovered/Not Resolved]
